FAERS Safety Report 10051457 (Version 2)
Quarter: 2014Q2

REPORT INFORMATION
  Report Type: Spontaneous
  Country: US (occurrence: US)
  Receive Date: 20140401
  Receipt Date: 20140408
  Transmission Date: 20141212
  Serious: Yes (Other)
  Sender: FDA-Public Use
  Company Number: US-TEVA-471595USA

PATIENT
  Sex: Male

DRUGS (1)
  1. NICOTINIC ACID [Suspect]

REACTIONS (4)
  - Pharyngeal haemorrhage [Unknown]
  - Foreign body [Unknown]
  - Oesophageal irritation [Unknown]
  - Product quality issue [Unknown]
